FAERS Safety Report 20584734 (Version 3)
Quarter: 2022Q3

REPORT INFORMATION
  Report Type: Spontaneous
  Country: TH (occurrence: TH)
  Receive Date: 20220311
  Receipt Date: 20220705
  Transmission Date: 20221027
  Serious: Yes (Other)
  Sender: FDA-Public Use
  Company Number: TH-NOVARTISPH-NVSC2022TH053661

PATIENT
  Age: 73 Year
  Sex: Male

DRUGS (8)
  1. ENTRESTO [Suspect]
     Active Substance: SACUBITRIL\VALSARTAN
     Indication: Cardiac failure
     Dosage: 0.5 DOSAGE FORM, BID (49/51)
     Route: 048
  2. ENTRESTO [Suspect]
     Active Substance: SACUBITRIL\VALSARTAN
     Dosage: 1 DOSAGE FORM, BID (STRENGTH: 49/51), PO: BY MOUTH, PC: AFTER MEALS)
     Route: 065
  3. ENTRESTO [Suspect]
     Active Substance: SACUBITRIL\VALSARTAN
     Dosage: 2 DOSAGE FORM, BID (STRENGTH: 49/51), PO: BY MOUTH, PC: AFTER MEALS)
     Route: 065
  4. SPIRONOLACTONE [Concomitant]
     Active Substance: SPIRONOLACTONE
     Indication: Product used for unknown indication
     Dosage: 1 DOSAGE FORM, QD (STRENGTH: 25, PO: BY MOUTH, PC: AFTER MEALS)
     Route: 048
  5. FUROSEMIDE [Concomitant]
     Active Substance: FUROSEMIDE
     Indication: Product used for unknown indication
     Dosage: 2 DOSAGE FORM, QD (STRENGTH: 25, PO: BY MOUTH, PC: AFTER MEALS)
     Route: 048
  6. DIGOXIN [Concomitant]
     Active Substance: DIGOXIN
     Indication: Product used for unknown indication
     Dosage: 1 DOSAGE FORM, QD (STRENGTH:0.0625, PO: BY MOUTH, PC: AFTER MEALS)
     Route: 048
  7. CARVEDILOL [Concomitant]
     Active Substance: CARVEDILOL
     Indication: Product used for unknown indication
     Dosage: 1 DOSAGE FORM, BID (12.5 MG)
     Route: 048
  8. WARFARIN [Concomitant]
     Active Substance: WARFARIN
     Indication: Product used for unknown indication
     Dosage: 1 DOSAGE FORM, BID (3 MG)
     Route: 048

REACTIONS (15)
  - Acute kidney injury [Unknown]
  - Blood creatinine increased [Unknown]
  - Hypokalaemia [Recovering/Resolving]
  - Ventricular tachycardia [Unknown]
  - Muscle strain [Unknown]
  - Arthralgia [Unknown]
  - Weight decreased [Unknown]
  - Palpitations [Recovering/Resolving]
  - Cardiac murmur [Unknown]
  - Blood chloride decreased [Unknown]
  - Blood bicarbonate increased [Unknown]
  - Fall [Unknown]
  - Blood sodium decreased [Unknown]
  - Fluid balance negative [Unknown]
  - Wrong technique in product usage process [Unknown]
